FAERS Safety Report 4529258-5 (Version None)
Quarter: 2004Q4

REPORT INFORMATION
  Report Type: 
  Country: None (occurrence: None)
  Receive Date: 20041202
  Receipt Date: 20040830
  Transmission Date: 20050328
  Serious: No
  Sender: FDA-Public Use
  Company Number: 200420433BWH

PATIENT
  Age: 49 Year
  Sex: Male

DRUGS (6)
  1. LEVITRA [Suspect]
     Indication: ERECTILE DYSFUNCTION
     Dosage: 10 MG, TOTAL DAILY, ORAL
     Route: 048
     Dates: start: 20040829
  2. ACTOS [Concomitant]
  3. GLUCOPHAGE [Concomitant]
  4. TRICOR [Concomitant]
  5. ALTACE [Concomitant]
  6. ASPIRIN [Concomitant]

REACTIONS (3)
  - FLUSHING [None]
  - HEADACHE [None]
  - NASAL CONGESTION [None]
